FAERS Safety Report 9415166 (Version 2)
Quarter: 2013Q3

REPORT INFORMATION
  Report Type: Spontaneous
  Country: JP (occurrence: JP)
  Receive Date: 20130723
  Receipt Date: 20130806
  Transmission Date: 20140515
  Serious: Yes (Other)
  Sender: FDA-Public Use
  Company Number: JP-JNJFOC-20130711043

PATIENT
  Age: 36 Year
  Sex: Female
  Weight: 25 kg

DRUGS (20)
  1. TOPINA [Suspect]
     Indication: GRAND MAL CONVULSION
     Route: 048
     Dates: start: 20090202, end: 20090208
  2. TOPINA [Suspect]
     Indication: GRAND MAL CONVULSION
     Route: 048
     Dates: start: 20090127, end: 20090201
  3. TOPINA [Suspect]
     Indication: GRAND MAL CONVULSION
     Route: 048
     Dates: start: 20090825, end: 20090901
  4. TOPINA [Suspect]
     Indication: GRAND MAL CONVULSION
     Route: 048
     Dates: start: 20090407, end: 20090809
  5. TOPINA [Suspect]
     Indication: GRAND MAL CONVULSION
     Route: 048
     Dates: start: 20090209, end: 20090406
  6. TOPINA [Suspect]
     Indication: GRAND MAL CONVULSION
     Route: 048
     Dates: start: 20090810, end: 20090817
  7. TOPINA [Suspect]
     Indication: GRAND MAL CONVULSION
     Route: 048
     Dates: start: 20090818, end: 20090824
  8. TOPINA [Suspect]
     Indication: GRAND MAL CONVULSION
     Route: 048
     Dates: start: 20090120, end: 20090126
  9. HYSERENIN [Suspect]
     Indication: GRAND MAL CONVULSION
     Route: 048
  10. URALYT-U [Concomitant]
     Dates: start: 20090818, end: 20090927
  11. ASPARTATE POTASSIUM [Concomitant]
     Dates: start: 20090811, end: 20090927
  12. ESCRE [Concomitant]
     Route: 065
  13. DIAPP [Concomitant]
  14. SOLDEM 3A [Concomitant]
     Dates: start: 20090807, end: 20090809
  15. SOLDEM 1 [Concomitant]
     Dates: start: 20090810, end: 20090810
  16. RIVOTRIL [Concomitant]
     Route: 065
  17. TEGRETOL [Concomitant]
     Route: 065
  18. PHENOBARBITAL [Concomitant]
     Route: 065
  19. LAXOBERON [Concomitant]
     Route: 065
  20. FERRIC PYROPHOSPHATE [Concomitant]
     Route: 065

REACTIONS (3)
  - Metabolic acidosis [Recovered/Resolved]
  - Status epilepticus [Unknown]
  - Renal tubular disorder [Recovered/Resolved]
